FAERS Safety Report 16952899 (Version 3)
Quarter: 2021Q2

REPORT INFORMATION
  Report Type: Spontaneous
  Country: US (occurrence: US)
  Receive Date: 20191023
  Receipt Date: 20210503
  Transmission Date: 20210716
  Serious: Yes (Other)
  Sender: FDA-Public Use
  Company Number: US-ASTELLAS-2019US041846

PATIENT
  Age: 56 Year
  Sex: Male

DRUGS (3)
  1. XGEVA [Suspect]
     Active Substance: DENOSUMAB
     Indication: PRODUCT USED FOR UNKNOWN INDICATION
     Dosage: UNK UNK, UNKNOWN FREQ.
     Route: 065
  2. XTANDI [Suspect]
     Active Substance: ENZALUTAMIDE
     Indication: PROSTATE CANCER
     Route: 048
     Dates: start: 20151223
  3. CALCIUM [Concomitant]
     Active Substance: CALCIUM
     Indication: PRODUCT USED FOR UNKNOWN INDICATION
     Dosage: UNK UNK, UNKNOWN FREQ.
     Route: 065

REACTIONS (21)
  - Pancytopenia [Unknown]
  - Fatigue [Unknown]
  - Gastrooesophageal reflux disease [Unknown]
  - Blood cholesterol increased [Unknown]
  - Memory impairment [Unknown]
  - Hypocalcaemia [Unknown]
  - Gynaecomastia [Unknown]
  - Blood triglycerides increased [Unknown]
  - Sleep disorder [Unknown]
  - Eosinophil count increased [Unknown]
  - Fatigue [Unknown]
  - Haematocrit decreased [Unknown]
  - Osteosclerosis [Unknown]
  - High density lipoprotein decreased [Unknown]
  - Neutrophil count decreased [Unknown]
  - Blood thyroid stimulating hormone decreased [Unknown]
  - Blood urea decreased [Unknown]
  - Blood glucose increased [Unknown]
  - COVID-19 [Unknown]
  - Abdominal discomfort [Unknown]
  - White blood cell count decreased [Unknown]

NARRATIVE: CASE EVENT DATE: 20160825
